FAERS Safety Report 5196548-5 (Version None)
Quarter: 2006Q4

REPORT INFORMATION
  Report Type: 
  Country: None (occurrence: None)
  Receive Date: 20061227
  Receipt Date: 20061205
  Transmission Date: 20070319
  Serious: Yes (Other)
  Sender: FDA-Public Use
  Company Number: S06-FRA-05124-01

PATIENT
  Age: 41 Year
  Sex: Female

DRUGS (4)
  1. SEROPLEX (ESCITALOPRAM) [Suspect]
     Dosage: 10 MG QD PO
     Route: 048
     Dates: start: 20060902, end: 20061009
  2. ATARAX [Concomitant]
  3. MAGNESIUM [Concomitant]
  4. PRAZEPAM [Concomitant]

REACTIONS (1)
  - GINGIVITIS ULCERATIVE [None]
